FAERS Safety Report 7521453-6 (Version None)
Quarter: 2011Q2

REPORT INFORMATION
  Report Type: 
  Country: None (occurrence: None)
  Receive Date: 20110603
  Receipt Date: 20110429
  Transmission Date: 20111010
  Serious: Yes (Death, Hospitalization)
  Sender: FDA-Public Use
  Company Number: US-BAYER-2010-000838

PATIENT
  Age: 57 Year
  Sex: Female

DRUGS (1)
  1. NEXAVAR [Suspect]
     Indication: MALIGNANT MELANOMA
     Dosage: 400 MG, BID
     Route: 048
     Dates: start: 20100528

REACTIONS (2)
  - DEATH [None]
  - HOSPITALISATION [None]
